FAERS Safety Report 5277079-0 (Version None)
Quarter: 2007Q1

REPORT INFORMATION
  Report Type: 
  Country: None (occurrence: None)
  Receive Date: 20070327
  Receipt Date: 20070320
  Transmission Date: 20070707
  Serious: Yes (Other)
  Sender: FDA-Public Use
  Company Number: US-GLAXOSMITHKLINE-A0636860A

PATIENT
  Age: 71 Year
  Sex: Male
  Weight: 120.5 kg

DRUGS (10)
  1. AVANDARYL [Suspect]
     Route: 048
     Dates: start: 20060701
  2. AVANDIA [Suspect]
     Route: 048
     Dates: start: 20060601, end: 20060901
  3. LASIX [Concomitant]
  4. ALLOPURINOL [Concomitant]
  5. LOTREL [Concomitant]
  6. ZOCOR [Concomitant]
  7. TOPROL-XL [Concomitant]
  8. PLAVIX [Concomitant]
  9. COZAAR [Concomitant]
     Dosage: 50MG TWICE PER DAY
  10. GLUCOTROL [Concomitant]
     Dates: end: 20060701

REACTIONS (7)
  - BLOOD GLUCOSE INCREASED [None]
  - DRUG INEFFECTIVE [None]
  - EYE DISORDER [None]
  - LACRIMATION INCREASED [None]
  - MACULAR OEDEMA [None]
  - PITTING OEDEMA [None]
  - WEIGHT INCREASED [None]
